FAERS Safety Report 10130356 (Version 1)
Quarter: 2014Q2

REPORT INFORMATION
  Report Type: Spontaneous
  Country: US (occurrence: None)
  Receive Date: 20140425
  Receipt Date: 20140425
  Transmission Date: 20141212
  Serious: Yes (Disabling)
  Sender: FDA-Public Use
  Company Number: None

PATIENT
  Age: 47 Year
  Sex: Female
  Weight: 81.65 kg

DRUGS (2)
  1. AVELOX [Suspect]
     Indication: CHOLELITHIASIS
     Dosage: 4 PILLS, FOUR TIMES DAILY, TAKEN BY MOUTH
     Route: 048
     Dates: start: 20050625, end: 20061107
  2. AVELOX [Suspect]
     Indication: SINUSITIS
     Dosage: 4 PILLS, FOUR TIMES DAILY, TAKEN BY MOUTH
     Route: 048
     Dates: start: 20050625, end: 20061107

REACTIONS (11)
  - Neuropathy peripheral [None]
  - Diplopia [None]
  - Balance disorder [None]
  - Tendon rupture [None]
  - Synovitis [None]
  - Arthralgia [None]
  - Muscular weakness [None]
  - Periarthritis [None]
  - Carpal tunnel decompression [None]
  - Trigger finger [None]
  - Neuroma [None]
